FAERS Safety Report 15805462 (Version 1)
Quarter: 2019Q1

REPORT INFORMATION
  Report Type: Spontaneous
  Country: GB (occurrence: GB)
  Receive Date: 20190110
  Receipt Date: 20190110
  Transmission Date: 20190417
  Serious: Yes (Other)
  Sender: FDA-Public Use
  Company Number: GB-UCBSA-2019000886

PATIENT
  Age: 21 Year
  Sex: Female
  Weight: 110 kg

DRUGS (1)
  1. KEPPRA [Suspect]
     Active Substance: LEVETIRACETAM
     Indication: PRODUCT USED FOR UNKNOWN INDICATION
     Dosage: 250 G IN MORNING AND 500 MG AT NIGHT
     Route: 048
     Dates: start: 20181022, end: 20181115

REACTIONS (8)
  - Psychotic disorder [Recovered/Resolved]
  - Confusional state [Recovered/Resolved]
  - Product substitution issue [Unknown]
  - Hallucination [Recovered/Resolved]
  - Nightmare [Recovered/Resolved]
  - Anxiety [Unknown]
  - Abnormal dreams [Recovered/Resolved]
  - Off label use [Unknown]

NARRATIVE: CASE EVENT DATE: 20181022
